FAERS Safety Report 7177544-5 (Version None)
Quarter: 2010Q4

REPORT INFORMATION
  Report Type: 
  Country: None (occurrence: None)
  Receive Date: 20101123
  Receipt Date: 20100914
  Transmission Date: 20110411
  Serious: No
  Sender: FDA-Public Use
  Company Number: 018875

PATIENT
  Sex: Male

DRUGS (7)
  1. CIMZIA [Suspect]
     Indication: CROHN'S DISEASE
     Dosage: (400 MG 1X/MONTH SUBCUTANEOUS)
     Route: 058
     Dates: start: 20100801
  2. PREDNISONE [Concomitant]
  3. ALLEGRA [Concomitant]
  4. VITAMIN D [Concomitant]
  5. VITAMIN E /00110501/ [Concomitant]
  6. VITAMIN B COMPLEX /00003501/ [Concomitant]
  7. MULTI-VITAMINS [Concomitant]

REACTIONS (1)
  - ACNE PUSTULAR [None]
